FAERS Safety Report 10007503 (Version 2)
Quarter: 2014Q2

REPORT INFORMATION
  Report Type: Spontaneous
  Country: IT (occurrence: None)
  Receive Date: 20140311
  Receipt Date: 20140401
  Transmission Date: 20141212
  Serious: Yes (Death)
  Sender: FDA-Public Use
  Company Number: FK201400716

PATIENT
  Sex: Female

DRUGS (1)
  1. PROPOFOL [Suspect]
     Indication: INTENTIONAL OVERDOSE
     Dosage: UNKNOWN

REACTIONS (2)
  - Completed suicide [None]
  - Intentional product misuse [None]
